FAERS Safety Report 10369583 (Version 2)
Quarter: 2015Q4

REPORT INFORMATION
  Report Type: Report from Study
  Country: US (occurrence: US)
  Receive Date: 20140807
  Receipt Date: 20151013
  Transmission Date: 20160304
  Serious: No
  Sender: FDA-Public Use
  Company Number: US-AMGEN-USASP2014021278

PATIENT
  Age: 36 Year
  Sex: Female

DRUGS (14)
  1. BENADRYL [Concomitant]
     Active Substance: DIPHENHYDRAMINE HYDROCHLORIDE
     Dosage: 50 MG, UNK
     Route: 042
  2. PROTONIX [Concomitant]
     Active Substance: PANTOPRAZOLE SODIUM
     Dosage: (20 MG, 1 IN 1 D)
     Route: 065
  3. PEPCID [Concomitant]
     Active Substance: FAMOTIDINE
     Dosage: 20 MG, UNK
     Route: 042
  4. DEXAMETHASONE. [Concomitant]
     Active Substance: DEXAMETHASONE
     Dosage: 10 MG, UNK
     Route: 065
  5. NEUPOGEN [Suspect]
     Active Substance: FILGRASTIM
     Indication: PRODUCT USED FOR UNKNOWN INDICATION
     Dosage: 480 MUG, UNK
     Route: 058
  6. DOCETAXEL. [Concomitant]
     Active Substance: DOCETAXEL
     Dosage: 130 MG, UNK
  7. IBUPROFEN. [Concomitant]
     Active Substance: IBUPROFEN
     Dosage: 400 MG, UNK
     Route: 065
  8. ZANTAC [Concomitant]
     Active Substance: RANITIDINE HYDROCHLORIDE
     Dosage: 50 MG, UNK
     Route: 065
  9. HERCEPTIN [Suspect]
     Active Substance: TRASTUZUMAB
     Dosage: 514 MG, UNK
     Route: 065
  10. HERCEPTIN [Suspect]
     Active Substance: TRASTUZUMAB
     Indication: BREAST CANCER
     Dosage: 171 MG, UNK
     Route: 065
  11. CARBOPLATIN. [Concomitant]
     Active Substance: CARBOPLATIN
     Dosage: 750 MG, UNK
  12. ABRAXANE [Concomitant]
     Active Substance: PACLITAXEL
     Dosage: UNK
     Route: 065
  13. ALOXI [Concomitant]
     Active Substance: PALONOSETRON HYDROCHLORIDE
     Dosage: 0.25 MG, UNK
     Route: 042
  14. ZOMETA [Concomitant]
     Active Substance: ZOLEDRONIC ACID
     Dosage: 4 MG, UNK
     Route: 065

REACTIONS (11)
  - Dizziness [Unknown]
  - Onychomadesis [Unknown]
  - Skin disorder [Unknown]
  - Pain in extremity [Unknown]
  - Abdominal pain upper [Unknown]
  - Vulvovaginal discomfort [Unknown]
  - Hypersensitivity [Unknown]
  - Pain [Unknown]
  - Decreased appetite [Unknown]
  - Fatigue [Unknown]
  - Asthenia [Unknown]
